FAERS Safety Report 9171212 (Version 2)
Quarter: 2015Q2

REPORT INFORMATION
  Report Type: Spontaneous
  Country: US (occurrence: US)
  Receive Date: 20130319
  Receipt Date: 20150422
  Transmission Date: 20150821
  Serious: Yes (Life-Threatening, Other)
  Sender: FDA-Public Use
  Company Number: US-ELI_LILLY_AND_COMPANY-US201303003512

PATIENT
  Age: 0 Day

DRUGS (5)
  1. OMEPRAZOLE. [Concomitant]
     Active Substance: OMEPRAZOLE
     Indication: GASTROOESOPHAGEAL REFLUX DISEASE
  2. AMBIEN [Concomitant]
     Active Substance: ZOLPIDEM TARTRATE
  3. FIORICET [Concomitant]
     Active Substance: ACETAMINOPHEN\BUTALBITAL\CAFFEINE
  4. PROZAC [Suspect]
     Active Substance: FLUOXETINE HYDROCHLORIDE
     Indication: DEPRESSION
     Dosage: 20 MG, QD
     Route: 064
     Dates: start: 2009, end: 201012
  5. RANITIDINE                         /00550802/ [Concomitant]
     Indication: GASTROOESOPHAGEAL REFLUX DISEASE

REACTIONS (8)
  - Neonatal respiratory distress syndrome [Unknown]
  - Neonatal aspiration [Unknown]
  - Foetal exposure during pregnancy [Recovered/Resolved]
  - Neonatal respiratory failure [Unknown]
  - Cardiac murmur [Unknown]
  - Drug withdrawal syndrome neonatal [Recovered/Resolved]
  - Exposure during breast feeding [Unknown]
  - Underweight [Unknown]

NARRATIVE: CASE EVENT DATE: 20101128
